FAERS Safety Report 9054454 (Version 1)
Quarter: 2013Q1

REPORT INFORMATION
  Report Type: Spontaneous
  Country: US (occurrence: US)
  Receive Date: 20130208
  Receipt Date: 20130208
  Transmission Date: 20140127
  Serious: No
  Sender: FDA-Public Use
  Company Number: US-GLAXOSMITHKLINE-A0976420A

PATIENT
  Sex: Female

DRUGS (1)
  1. PAXIL [Suspect]
     Indication: PRODUCT USED FOR UNKNOWN INDICATION
     Route: 065
     Dates: start: 201201

REACTIONS (5)
  - Withdrawal syndrome [Unknown]
  - Hyperhidrosis [Unknown]
  - Sensation of blood flow [Unknown]
  - Paraesthesia [Unknown]
  - Disturbance in attention [Unknown]
